FAERS Safety Report 24605281 (Version 1)
Quarter: 2024Q4

REPORT INFORMATION
  Report Type: Spontaneous
  Country: US (occurrence: US)
  Receive Date: 20241111
  Receipt Date: 20241111
  Transmission Date: 20250115
  Serious: No
  Sender: SANOFI AVENTIS
  Company Number: US-SA-2024SA314203

PATIENT
  Sex: Male

DRUGS (1)
  1. FABRAZYME [Suspect]
     Active Substance: AGALSIDASE BETA
     Indication: Fabry^s disease
     Dosage: 100 MG EVERY 2 WEEK
     Route: 042
     Dates: start: 201609

REACTIONS (2)
  - Parosmia [Unknown]
  - Feeling cold [Unknown]

NARRATIVE: CASE EVENT DATE: 20240101
